FAERS Safety Report 6417741-7 (Version None)
Quarter: 2009Q4

REPORT INFORMATION
  Report Type: 
  Country: None (occurrence: None)
  Receive Date: 20091026
  Receipt Date: 20091013
  Transmission Date: 20100525
  Serious: Yes (Life-Threatening, Hospitalization)
  Sender: FDA-Public Use
  Company Number: ADR39952009

PATIENT
  Age: 84 Year
  Sex: Male

DRUGS (7)
  1. SIMVASTATIN [Suspect]
     Indication: PROPHYLAXIS
     Dosage: 40 MG ORAL
     Route: 048
     Dates: start: 20081029, end: 20081130
  2. CO-DYDRAMOL [Concomitant]
  3. FRUSEMIDE (40MG) [Concomitant]
  4. IPRATROPIUM [Concomitant]
  5. PERINDOPRIL (6MG) [Concomitant]
  6. SPIRONOLACTONE [Concomitant]
  7. WARFARIN SODIUM [Concomitant]

REACTIONS (7)
  - ASTHENIA [None]
  - CARDIAC FAILURE [None]
  - CONDITION AGGRAVATED [None]
  - DYSPNOEA [None]
  - MOBILITY DECREASED [None]
  - MYOPATHY [None]
  - RHABDOMYOLYSIS [None]
